FAERS Safety Report 6147028-1 (Version None)
Quarter: 2009Q2

REPORT INFORMATION
  Report Type: 
  Country: None (occurrence: None)
  Receive Date: 20090407
  Receipt Date: 20090323
  Transmission Date: 20091009
  Serious: Yes (Hospitalization, Other)
  Sender: FDA-Public Use
  Company Number: DE-GENENTECH-280521

PATIENT
  Sex: Male

DRUGS (8)
  1. AVASTIN [Suspect]
     Indication: COLON CANCER
     Dosage: UNK
     Dates: start: 20080601, end: 20080801
  2. XELODA [Suspect]
     Indication: COLON CANCER
     Dosage: UNK
     Dates: start: 20080601, end: 20080801
  3. HUMIRA [Suspect]
     Indication: CROHN'S DISEASE
     Dosage: 40 MG, UNK
  4. OXALIPLATIN [Suspect]
     Indication: COLON CANCER
     Dosage: UNK
     Dates: start: 20080601, end: 20080801
  5. FLUOROURACIL [Suspect]
     Indication: COLON CANCER
     Dosage: UNK
     Dates: start: 20080910
  6. FOLINIC ACID [Suspect]
     Indication: COLON CANCER
     Dosage: UNK
     Dates: start: 20080910
  7. IRINOTECAN HCL [Suspect]
     Indication: COLON CANCER
  8. METOCLOPRAMIDE DROPS [Suspect]

REACTIONS (3)
  - GASTRIC ULCER [None]
  - ODYNOPHAGIA [None]
  - OESOPHAGITIS [None]
